FAERS Safety Report 25934831 (Version 2)
Quarter: 2025Q4

REPORT INFORMATION
  Report Type: Report from Study
  Country: CA (occurrence: CA)
  Receive Date: 20251017
  Receipt Date: 20251028
  Transmission Date: 20260118
  Serious: Yes (Hospitalization)
  Sender: LUNDBECK
  Company Number: CA-LUNDBECK-DKLU4018327

PATIENT
  Age: 55 Year
  Sex: Female

DRUGS (2)
  1. VYEPTI [Suspect]
     Active Substance: EPTINEZUMAB-JJMR
     Indication: Migraine
     Dosage: 100 MILLIGRAM
     Route: 041
     Dates: start: 20250303
  2. WARFARIN [Concomitant]
     Active Substance: WARFARIN
     Indication: Heart valve replacement

REACTIONS (2)
  - Subdural haemorrhage [Recovered/Resolved with Sequelae]
  - Anticoagulation drug level above therapeutic [Recovered/Resolved with Sequelae]
